FAERS Safety Report 6740164-8 (Version None)
Quarter: 2010Q2

REPORT INFORMATION
  Report Type: 
  Country: None (occurrence: None)
  Receive Date: 20100525
  Receipt Date: 20100519
  Transmission Date: 20101027
  Serious: Yes (Other)
  Sender: FDA-Public Use
  Company Number: A0786275A

PATIENT
  Sex: Female

DRUGS (1)
  1. AVANDIA [Suspect]
     Indication: DIABETES MELLITUS
     Dates: start: 19990101, end: 20050901

REACTIONS (15)
  - ANXIETY [None]
  - CARDIAC FAILURE CONGESTIVE [None]
  - CARDIAC MURMUR [None]
  - CARDIOVASCULAR DISORDER [None]
  - CHEST PAIN [None]
  - CHOLECYSTECTOMY [None]
  - DEPRESSION [None]
  - EXCESSIVE SKIN [None]
  - HERNIA [None]
  - HYPERTENSION [None]
  - NEUROPATHY PERIPHERAL [None]
  - OEDEMA [None]
  - OEDEMA PERIPHERAL [None]
  - SLEEP APNOEA SYNDROME [None]
  - WEIGHT INCREASED [None]
